FAERS Safety Report 7449869-7 (Version None)
Quarter: 2011Q2

REPORT INFORMATION
  Report Type: 
  Country: None (occurrence: None)
  Receive Date: 20110428
  Receipt Date: 20110428
  Transmission Date: 20111010
  Serious: Yes (Death)
  Sender: FDA-Public Use
  Company Number: None

PATIENT
  Age: 18 Year
  Sex: Male
  Weight: 69.5 kg

DRUGS (1)
  1. LENALIDOMIDE [Suspect]
     Indication: HEPATIC NEOPLASM MALIGNANT
     Dosage: 25MG DAILY X 21 DAYS PO
     Route: 048
     Dates: start: 20110204, end: 20110324

REACTIONS (1)
  - DISEASE PROGRESSION [None]
